FAERS Safety Report 7998782-5 (Version None)
Quarter: 2011Q4

REPORT INFORMATION
  Report Type: 
  Country: None (occurrence: None)
  Receive Date: 20111216
  Receipt Date: 20111208
  Transmission Date: 20120403
  Serious: Yes (Hospitalization)
  Sender: FDA-Public Use
  Company Number: AUR-APL-2011-03706

PATIENT
  Age: 54 Year
  Sex: Male

DRUGS (6)
  1. ATIVAN [Concomitant]
  2. LISINOPRIL [Concomitant]
  3. GLUCOPHAGE [Concomitant]
  4. PAROXETINE HCL [Suspect]
     Indication: ANXIETY
     Dosage: 20 MG, 1 D
     Dates: start: 20031201, end: 20110521
  5. PAROXETINE HCL [Suspect]
     Indication: DEPRESSION
     Dosage: 20 MG, 1 D
     Dates: start: 20031201, end: 20110521
  6. SIMVASTATIN [Concomitant]

REACTIONS (5)
  - MANIA [None]
  - AGITATION [None]
  - SOLILOQUY [None]
  - RESTLESSNESS [None]
  - INSOMNIA [None]
